FAERS Safety Report 20859139 (Version 2)
Quarter: 2022Q2

REPORT INFORMATION
  Report Type: Spontaneous
  Country: US (occurrence: US)
  Receive Date: 20220523
  Receipt Date: 20220603
  Transmission Date: 20220721
  Serious: Yes (Other)
  Sender: FDA-Public Use
  Company Number: US-AUROBINDO-AUR-APL-2022-017998

PATIENT
  Age: 18 Year
  Sex: Male

DRUGS (3)
  1. MODAFINIL [Suspect]
     Active Substance: MODAFINIL
     Indication: Catatonia
     Dosage: 100 MILLIGRAM, ONCE A DAY
     Route: 065
  2. QUETIAPINE [Suspect]
     Active Substance: QUETIAPINE
     Indication: Catatonia
     Dosage: 75 MILLIGRAM, ONCE A DAY NIGHTLY)
     Route: 065
  3. AMANTADINE [Concomitant]
     Active Substance: AMANTADINE
     Indication: Product used for unknown indication
     Dosage: 200 MILLIGRAM, TWO TIMES A DAY
     Route: 065

REACTIONS (1)
  - Agitation [Recovered/Resolved]
